FAERS Safety Report 20430425 (Version 1)
Quarter: 2022Q1

REPORT INFORMATION
  Report Type: Report from Study
  Country: FR (occurrence: FR)
  Receive Date: 20220204
  Receipt Date: 20220204
  Transmission Date: 20220423
  Serious: Yes (Death, Life-Threatening)
  Sender: FDA-Public Use
  Company Number: FR-SERVIER-S20007235

PATIENT

DRUGS (7)
  1. PEGASPARGASE [Suspect]
     Active Substance: PEGASPARGASE
     Indication: Acute lymphocytic leukaemia
     Dosage: 3800 IU D12 AND D26
     Route: 042
     Dates: start: 20200504, end: 20200519
  2. VINCRISTINE SULFATE [Suspect]
     Active Substance: VINCRISTINE SULFATE
     Indication: Acute lymphocytic leukaemia
     Dosage: 2 MG D8,D15 AND D22
     Route: 042
     Dates: start: 20200430, end: 20200514
  3. DAUNORUBICIN HYDROCHLORIDE [Suspect]
     Active Substance: DAUNORUBICIN HYDROCHLORIDE
     Indication: Acute lymphocytic leukaemia
     Dosage: 46 MG D8,D15 AND D22
     Route: 042
     Dates: start: 20200430, end: 20200514
  4. METHOTREXATE [Suspect]
     Active Substance: METHOTREXATE
     Indication: Acute lymphocytic leukaemia
     Dosage: 15 MG D13 AND D24
     Route: 037
     Dates: start: 20200505, end: 20200515
  5. CYTARABINE [Suspect]
     Active Substance: CYTARABINE
     Indication: Acute lymphocytic leukaemia
     Dosage: 30 MG D13 AND D24
     Route: 037
     Dates: start: 20200505, end: 20200515
  6. HYDROCORTISONE [Suspect]
     Active Substance: HYDROCORTISONE
     Indication: Acute lymphocytic leukaemia
     Dosage: 15 MG D13
     Route: 037
     Dates: start: 20200515, end: 20200515
  7. PREDNISONE [Suspect]
     Active Substance: PREDNISONE
     Indication: Acute lymphocytic leukaemia
     Dosage: 90 MG D1 TO D28
     Route: 048
     Dates: start: 20200422, end: 20200520

REACTIONS (6)
  - Bronchopulmonary aspergillosis [Fatal]
  - Haemoptysis [Fatal]
  - Cerebral ischaemia [Fatal]
  - Cardiac arrest [Fatal]
  - Quadriparesis [Fatal]
  - Hypoaesthesia [Fatal]

NARRATIVE: CASE EVENT DATE: 20200519
